FAERS Safety Report 6655313-X (Version None)
Quarter: 2010Q1

REPORT INFORMATION
  Report Type: 
  Country: None (occurrence: None)
  Receive Date: 20100318
  Receipt Date: 20091104
  Transmission Date: 20100710
  Serious: Yes (Other)
  Sender: FDA-Public Use
  Company Number: 2009269875

PATIENT
  Age: 91 Year
  Sex: Female
  Weight: 54.4 kg

DRUGS (4)
  1. XALATAN [Suspect]
     Indication: GLAUCOMA
     Dosage: 1X/DAY, OPHTHALMIC
     Route: 047
     Dates: start: 20080801
  2. ATENOLOL [Concomitant]
  3. OMEPRAZOLE [Concomitant]
  4. METFORMIN HCL [Concomitant]

REACTIONS (1)
  - DIZZINESS [None]
